FAERS Safety Report 15023085 (Version 1)
Quarter: 2018Q2

REPORT INFORMATION
  Report Type: Spontaneous
  Country: US (occurrence: US)
  Receive Date: 20180524
  Receipt Date: 20180524
  Transmission Date: 20180711
  Serious: Yes (Hospitalization)
  Sender: FDA-Public Use
  Company Number: None

PATIENT
  Age: 52 Year
  Sex: Female
  Weight: 148 kg

DRUGS (1)
  1. METHOCARBAMOL. [Suspect]
     Active Substance: METHOCARBAMOL
     Indication: PAIN
     Route: 048
     Dates: start: 20180404, end: 20180516

REACTIONS (5)
  - Hypertension [None]
  - Fatigue [None]
  - Left ventricular failure [None]
  - Encephalopathy [None]
  - Pneumonia [None]

NARRATIVE: CASE EVENT DATE: 20180404
